FAERS Safety Report 24270641 (Version 2)
Quarter: 2025Q1

REPORT INFORMATION
  Report Type: Report from Study
  Country: US (occurrence: US)
  Receive Date: 20240831
  Receipt Date: 20250109
  Transmission Date: 20250409
  Serious: Yes (Other)
  Sender: ABBVIE
  Company Number: US-ABBVIE-5353412

PATIENT
  Age: 61 Year
  Sex: Female

DRUGS (2)
  1. RINVOQ [Suspect]
     Active Substance: UPADACITINIB
     Indication: Crohn^s disease
     Route: 048
     Dates: start: 2023
  2. RINVOQ [Suspect]
     Active Substance: UPADACITINIB
     Indication: Crohn^s disease
     Route: 048

REACTIONS (7)
  - Back disorder [Recovering/Resolving]
  - Drug ineffective [Recovering/Resolving]
  - Intervertebral disc protrusion [Recovered/Resolved]
  - Musculoskeletal disorder [Recovering/Resolving]
  - Post-acute COVID-19 syndrome [Recovered/Resolved]
  - Hepatic enzyme increased [Unknown]
  - Blood cholesterol increased [Not Recovered/Not Resolved]

NARRATIVE: CASE EVENT DATE: 20230101
